FAERS Safety Report 4489093-3 (Version None)
Quarter: 2004Q4

REPORT INFORMATION
  Report Type: 
  Country: None (occurrence: None)
  Receive Date: 20041029
  Receipt Date: 20041019
  Transmission Date: 20050328
  Serious: Yes (Hospitalization)
  Sender: FDA-Public Use
  Company Number: JP-ROCHE-383568

PATIENT
  Age: 62 Year
  Sex: Female

DRUGS (1)
  1. HORIZON [Suspect]
     Route: 048

REACTIONS (3)
  - DISEASE RECURRENCE [None]
  - DYSPHAGIA [None]
  - PNEUMONIA ASPIRATION [None]
